FAERS Safety Report 10250152 (Version 1)
Quarter: 2014Q2

REPORT INFORMATION
  Report Type: Spontaneous
  Country: US (occurrence: US)
  Receive Date: 20140620
  Receipt Date: 20140620
  Transmission Date: 20141212
  Serious: Yes (Hospitalization)
  Sender: FDA-Public Use
  Company Number: US-BRISTOL-MYERS SQUIBB COMPANY-20698551

PATIENT
  Age: 73 Year
  Sex: Female

DRUGS (1)
  1. ELIQUIS [Suspect]
     Indication: ATRIAL FIBRILLATION
     Route: 048

REACTIONS (2)
  - Haematemesis [Recovered/Resolved]
  - Faeces discoloured [Recovered/Resolved]
